FAERS Safety Report 25828286 (Version 1)
Quarter: 2025Q3

REPORT INFORMATION
  Report Type: Spontaneous
  Country: CN (occurrence: CN)
  Receive Date: 20250921
  Receipt Date: 20250921
  Transmission Date: 20251020
  Serious: Yes (Other)
  Sender: BEIGENE
  Company Number: CN-ROCHE-10000380833

PATIENT
  Age: 49 Year
  Weight: 58 kg

DRUGS (49)
  1. BRUKINSA [Suspect]
     Active Substance: ZANUBRUTINIB
     Indication: Diffuse large B-cell lymphoma
  2. RITUXIMAB [Suspect]
     Active Substance: RITUXIMAB
     Indication: Diffuse large B-cell lymphoma
  3. DEXAMETHASONE [Suspect]
     Active Substance: DEXAMETHASONE
     Indication: Diffuse large B-cell lymphoma
  4. POLATUZUMAB VEDOTIN [Suspect]
     Active Substance: POLATUZUMAB VEDOTIN
     Indication: Diffuse large B-cell lymphoma
  5. EPIRUBICIN HYDROCHLORIDE [Suspect]
     Active Substance: EPIRUBICIN HYDROCHLORIDE
     Indication: Diffuse large B-cell lymphoma
  6. ETOPOSIDE [Suspect]
     Active Substance: ETOPOSIDE
     Indication: Diffuse large B-cell lymphoma
  7. EPIRUBICIN [Suspect]
     Active Substance: EPIRUBICIN
     Indication: Diffuse large B-cell lymphoma
  8. METHYLPREDNISOLONE [Suspect]
     Active Substance: METHYLPREDNISOLONE
     Indication: Diffuse large B-cell lymphoma
  9. VINCRISTINE [Suspect]
     Active Substance: VINCRISTINE
     Indication: Diffuse large B-cell lymphoma
  10. CYCLOPHOSPHAMIDE [Suspect]
     Active Substance: CYCLOPHOSPHAMIDE
     Indication: Diffuse large B-cell lymphoma
  11. DEXAMETHASONE SODIUM PHOSPHATE [Concomitant]
     Active Substance: DEXAMETHASONE SODIUM PHOSPHATE
  12. FLUCONAZOLE [Concomitant]
     Active Substance: FLUCONAZOLE
  13. SULFAMETHOXAZOLE [Concomitant]
     Active Substance: SULFAMETHOXAZOLE
  14. MONTMORILLONITE [Concomitant]
     Active Substance: MONTMORILLONITE
  15. LOPERAMIDE HYDROCHLORIDE [Concomitant]
     Active Substance: LOPERAMIDE HYDROCHLORIDE
  16. BERBERINE [Concomitant]
     Active Substance: BERBERINE
  17. LEUCOGEN [Concomitant]
     Active Substance: LEUCOGEN
  18. ENTECAVIR [Concomitant]
     Active Substance: ENTECAVIR
  19. SEMUSTINE [Concomitant]
     Active Substance: SEMUSTINE
  20. CALCIUM CARBONATE\VITAMIN D [Concomitant]
     Active Substance: CALCIUM CARBONATE\VITAMIN D
  21. CETIRIZINE HYDROCHLORIDE [Concomitant]
     Active Substance: CETIRIZINE HYDROCHLORIDE
  22. METRONIDAZOLE [Concomitant]
     Active Substance: METRONIDAZOLE
  23. IBUPROFEN [Concomitant]
     Active Substance: IBUPROFEN
  24. OCTREOTIDE ACETATE [Concomitant]
     Active Substance: OCTREOTIDE ACETATE
  25. MEROPENEM [Concomitant]
     Active Substance: MEROPENEM
  26. ROXITHROMYCIN [Concomitant]
     Active Substance: ROXITHROMYCIN
  27. METHYLCOBALAMIN [Concomitant]
     Active Substance: METHYLCOBALAMIN
  28. ACETYLCYSTEINE [Concomitant]
     Active Substance: ACETYLCYSTEINE
  29. OMEPRAZOLE [Concomitant]
     Active Substance: OMEPRAZOLE
  30. CASPOFUNGIN ACETATE [Concomitant]
     Active Substance: CASPOFUNGIN ACETATE
  31. SUCRALFATE [Concomitant]
     Active Substance: SUCRALFATE
  32. FUROSEMIDE [Concomitant]
     Active Substance: FUROSEMIDE
  33. TORSEMIDE [Concomitant]
     Active Substance: TORSEMIDE
  34. MAGNESIUM ISOGLYCYRRHIZINATE [Concomitant]
     Active Substance: MAGNESIUM ISOGLYCYRRHIZINATE
  35. ESOMEPRAZOLE SODIUM [Concomitant]
     Active Substance: ESOMEPRAZOLE SODIUM
  36. ONDANSETRON HYDROCHLORIDE [Concomitant]
     Active Substance: ONDANSETRON HYDROCHLORIDE
  37. CYTARABINE HYDROCHLORIDE [Concomitant]
     Active Substance: CYTARABINE HYDROCHLORIDE
  38. LEVOFLOXACIN [Concomitant]
     Active Substance: LEVOFLOXACIN
  39. Aminophylline;Chlorphenamine maleate;Methoxyphenamine hydrochloride;No [Concomitant]
  40. ETOPOSIDE [Concomitant]
     Active Substance: ETOPOSIDE
  41. POTASSIUM CHLORIDE [Concomitant]
     Active Substance: POTASSIUM CHLORIDE
  42. PROMETHAZINE HYDROCHLORIDE [Concomitant]
     Active Substance: PROMETHAZINE HYDROCHLORIDE
  43. GLUTATHIONE [Concomitant]
     Active Substance: GLUTATHIONE
  44. ACYCLOVIR [Concomitant]
     Active Substance: ACYCLOVIR
  45. INSULIN HUMAN [Concomitant]
     Active Substance: INSULIN HUMAN
  46. AVATROMBOPAG [Concomitant]
     Active Substance: AVATROMBOPAG
  47. ALPROSTADIL [Concomitant]
     Active Substance: ALPROSTADIL
  48. BATROXOBIN [Concomitant]
     Active Substance: BATROXOBIN
  49. URSODIOL [Concomitant]
     Active Substance: URSODIOL

REACTIONS (2)
  - Myelosuppression [Unknown]
  - Off label use [Unknown]
